FAERS Safety Report 12156842 (Version 1)
Quarter: 2016Q1

REPORT INFORMATION
  Report Type: Spontaneous
  Country: US (occurrence: US)
  Receive Date: 20160307
  Receipt Date: 20160307
  Transmission Date: 20160526
  Serious: Yes (Hospitalization, Other)
  Sender: FDA-Public Use
  Company Number: GXBR2016US000859

PATIENT
  Age: 72 Year
  Sex: Male

DRUGS (1)
  1. AMIODARONE HYDROCHLORIDE. [Suspect]
     Active Substance: AMIODARONE HYDROCHLORIDE
     Indication: ATRIAL FIBRILLATION
     Dosage: 200 MG, UNK
     Route: 065
     Dates: start: 201201

REACTIONS (15)
  - Weight decreased [Unknown]
  - Pulmonary fibrosis [Unknown]
  - Cough [Unknown]
  - Disturbance in attention [Unknown]
  - Diabetes mellitus [Unknown]
  - Hyperthyroidism [Unknown]
  - Nervousness [Unknown]
  - Restlessness [Unknown]
  - Off label use [Unknown]
  - Depression [Unknown]
  - Dyspnoea [Unknown]
  - Fatigue [Unknown]
  - Wheezing [Unknown]
  - Asthenia [Unknown]
  - Irritability [Unknown]

NARRATIVE: CASE EVENT DATE: 201208
